FAERS Safety Report 13827693 (Version 1)
Quarter: 2017Q3

REPORT INFORMATION
  Report Type: Report from Study
  Country: None (occurrence: US)
  Receive Date: 20170803
  Receipt Date: 20170803
  Transmission Date: 20171127
  Serious: Yes (Hospitalization, Other)
  Sender: FDA-Public Use
  Company Number: US-ABBVIE-17K-163-1965253-00

PATIENT
  Age: 38 Year
  Sex: Female
  Weight: 54.48 kg

DRUGS (1)
  1. HUMIRA [Suspect]
     Active Substance: ADALIMUMAB
     Indication: CROHN^S DISEASE
     Route: 058
     Dates: end: 201610

REACTIONS (9)
  - Abdominal operation [Unknown]
  - Gastrointestinal stenosis [Recovered/Resolved]
  - Intestinal resection [Unknown]
  - Drug specific antibody [Unknown]
  - Abdominal pain [Recovering/Resolving]
  - Infection [Unknown]
  - Abdominal infection [Unknown]
  - Dehydration [Recovered/Resolved]
  - Infection [Recovered/Resolved]

NARRATIVE: CASE EVENT DATE: 2016
